FAERS Safety Report 20486027 (Version 4)
Quarter: 2023Q1

REPORT INFORMATION
  Report Type: Report from Study
  Country: US (occurrence: US)
  Receive Date: 20220217
  Receipt Date: 20230124
  Transmission Date: 20230417
  Serious: No
  Sender: FDA-Public Use
  Company Number: US-KYOWAKIRIN-2022BKK001734

PATIENT

DRUGS (7)
  1. CRYSVITA [Suspect]
     Active Substance: BUROSUMAB-TWZA
     Indication: Hereditary hypophosphataemic rickets
     Dosage: UNK
     Route: 030
  2. CRYSVITA [Suspect]
     Active Substance: BUROSUMAB-TWZA
     Indication: Hereditary hypophosphataemic rickets
     Dosage: 5 MG, 1X/2 WEEKS(0.5 ML OR 5 MG, 1X/2 WEEKS, TOTAL DOSE IS 65 MG)
     Route: 065
  3. CRYSVITA [Suspect]
     Active Substance: BUROSUMAB-TWZA
     Indication: Hereditary hypophosphataemic rickets
     Dosage: 60 MG, 1X/2 WEEKS (2 ML OR 60 MG, 1X/2 WEEKS, TOTAL DOSE IS 65 MG)
     Route: 065
  4. LIDO [Concomitant]
     Indication: Product used for unknown indication
     Dosage: 3 % LOTION
     Route: 065
  5. LORATADINE [Concomitant]
     Active Substance: LORATADINE
     Indication: Product used for unknown indication
     Dosage: 10MG-240MG ER 24H
     Route: 065
  6. VITAMINS [Concomitant]
     Active Substance: VITAMINS
     Indication: Product used for unknown indication
     Dosage: 200-137.5
     Route: 065
  7. VITAMIN D3 [Concomitant]
     Active Substance: CHOLECALCIFEROL
     Indication: Product used for unknown indication
     Dosage: 120MG-1000
     Route: 065

REACTIONS (5)
  - Blood phosphorus decreased [Unknown]
  - Mood altered [Unknown]
  - Rash [Recovered/Resolved]
  - Vitamin D decreased [Unknown]
  - Incorrect route of product administration [Unknown]
